FAERS Safety Report 7893743-9 (Version None)
Quarter: 2011Q4

REPORT INFORMATION
  Report Type: 
  Country: None (occurrence: None)
  Receive Date: 20111104
  Receipt Date: 20111027
  Transmission Date: 20120403
  Serious: Yes (Congenital Anomaly, Other)
  Sender: FDA-Public Use
  Company Number: PHHY2011GB95179

PATIENT
  Sex: Female

DRUGS (5)
  1. CYCLIZINE [Concomitant]
     Dosage: UNK
  2. FLUOXETINE HCL [Suspect]
     Dosage: UNK
     Route: 064
  3. OMEPRAZOLE [Concomitant]
     Dosage: UNK
  4. PAROXETINE HCL [Concomitant]
     Dosage: UNK
  5. CHLORPROMAZINE [Suspect]
     Dosage: UNK
     Route: 064

REACTIONS (3)
  - MATERNAL EXPOSURE DURING PREGNANCY [None]
  - CLEFT PALATE [None]
  - SMALL FOR DATES BABY [None]
